FAERS Safety Report 4551147-0 (Version None)
Quarter: 2005Q1

REPORT INFORMATION
  Report Type: 
  Country: None (occurrence: None)
  Receive Date: 20050113
  Receipt Date: 20050110
  Transmission Date: 20050727
  Serious: Yes (Other)
  Sender: FDA-Public Use
  Company Number: US-JNJFOC-20041102619

PATIENT
  Sex: Female
  Weight: 78.93 kg

DRUGS (3)
  1. REMICADE [Suspect]
     Route: 042
  2. REMICADE [Suspect]
     Route: 042
  3. REMICADE [Suspect]
     Indication: RHEUMATOID ARTHRITIS
     Dosage: 4 DOSES
     Route: 042

REACTIONS (6)
  - CALCULUS URETERIC [None]
  - CALCULUS URINARY [None]
  - HAEMATURIA [None]
  - NEPHROLITHIASIS [None]
  - RENAL ABSCESS [None]
  - UROSEPSIS [None]
